FAERS Safety Report 22812740 (Version 2)
Quarter: 2025Q4

REPORT INFORMATION
  Report Type: Spontaneous
  Country: EU (occurrence: EU)
  Receive Date: 20230811
  Receipt Date: 20251010
  Transmission Date: 20260118
  Serious: Yes (Other)
  Sender: TEVA
  Company Number: None

PATIENT
  Age: 55 Year
  Sex: Female
  Weight: 52 kg

DRUGS (1)
  1. CIPROFLOXACIN [Suspect]
     Active Substance: CIPROFLOXACIN
     Indication: Cystitis noninfective
     Dosage: 200MG; 1 TABLET TWICE DAILY
     Route: 048
     Dates: start: 20130911, end: 20130918

REACTIONS (18)
  - Hallucination [Recovered/Resolved with Sequelae]
  - Myalgia [Recovered/Resolved with Sequelae]
  - Histamine intolerance [Recovered/Resolved with Sequelae]
  - Fatigue [Recovered/Resolved with Sequelae]
  - Illness [Recovered/Resolved with Sequelae]
  - Vulvovaginal pain [Recovered/Resolved with Sequelae]
  - Mast cell activation syndrome [Recovered/Resolved with Sequelae]
  - Bladder pain [Recovered/Resolved with Sequelae]
  - Arthralgia [Recovered/Resolved with Sequelae]
  - Gingivitis [Recovered/Resolved with Sequelae]
  - Weight decreased [Recovered/Resolved with Sequelae]
  - Asthenia [Recovered/Resolved with Sequelae]
  - Product prescribing issue [Unknown]
  - Tooth loss [Recovered/Resolved with Sequelae]
  - Panic reaction [Recovered/Resolved with Sequelae]
  - Food intolerance [Recovered/Resolved with Sequelae]
  - Chronic fatigue syndrome [Recovered/Resolved with Sequelae]
  - Idiopathic environmental intolerance [Recovered/Resolved with Sequelae]

NARRATIVE: CASE EVENT DATE: 20130915
